FAERS Safety Report 25928040 (Version 1)
Quarter: 2025Q4

REPORT INFORMATION
  Report Type: Spontaneous
  Country: US (occurrence: US)
  Receive Date: 20251016
  Receipt Date: 20251016
  Transmission Date: 20260117
  Serious: No
  Sender: ALEXION PHARMACEUTICALS
  Company Number: US-PROCTER+GAMBLE-PH25016384

PATIENT
  Age: 70 Year
  Sex: Female

DRUGS (1)
  1. PRILOSEC OTC [Interacting]
     Active Substance: OMEPRAZOLE MAGNESIUM
     Indication: Gastrooesophageal reflux disease
     Dosage: 1 TABLET, MORNING
     Dates: start: 20250921, end: 20250924

REACTIONS (6)
  - Restless legs syndrome [Recovered/Resolved]
  - Condition aggravated [Recovered/Resolved]
  - Drug interaction [Unknown]
  - Therapeutic response decreased [Unknown]
  - Loss of therapeutic response [Unknown]
  - Drug effective for unapproved indication [Unknown]

NARRATIVE: CASE EVENT DATE: 20250901
